FAERS Safety Report 4287097-7 (Version None)
Quarter: 2004Q1

REPORT INFORMATION
  Report Type: 
  Country: None (occurrence: None)
  Receive Date: 20040204
  Receipt Date: 20040121
  Transmission Date: 20041129
  Serious: Yes (Hospitalization)
  Sender: FDA-Public Use
  Company Number: 2004IM000106

PATIENT
  Age: 31 Year
  Sex: Female

DRUGS (1)
  1. INFERAX (INTERFERON ALFACON-1) [Suspect]
     Indication: HEPATITIS C
     Dosage: 18 UG; SUBCUTANEOUS
     Route: 058
     Dates: start: 20031018

REACTIONS (1)
  - CONVULSION [None]
